FAERS Safety Report 6021892-9 (Version None)
Quarter: 2008Q4

REPORT INFORMATION
  Report Type: 
  Country: None (occurrence: None)
  Receive Date: 20081229
  Receipt Date: 20081218
  Transmission Date: 20090506
  Serious: Yes (Hospitalization)
  Sender: FDA-Public Use
  Company Number: DE-AMGEN-US325078

PATIENT
  Sex: Male
  Weight: 90 kg

DRUGS (10)
  1. ENBREL [Suspect]
     Indication: RHEUMATOID ARTHRITIS
     Route: 058
     Dates: start: 20071030, end: 20081001
  2. PREDNISOLONE [Suspect]
     Indication: RHEUMATOID ARTHRITIS
     Dosage: 7.0 - 11.0 MG ONCE DAILY
     Route: 048
     Dates: start: 20020801
  3. BISOPROLOL FUMARATE [Concomitant]
     Indication: HYPERTENSION
     Route: 048
     Dates: start: 20000101
  4. ALLOPURINOL [Concomitant]
     Route: 065
  5. FENOFIBRATE [Concomitant]
     Route: 065
  6. ACETYLSALICYLIC ACID SRT [Concomitant]
     Route: 065
  7. PANTOPRAZOLE [Concomitant]
     Route: 065
  8. CALCIMAGON [Concomitant]
     Route: 065
  9. LORSARTAN POTASSIUM HYDROCHLORIDE [Concomitant]
     Route: 065
     Dates: start: 20020101
  10. PENTAERITHRITYL TETRANITRATE [Concomitant]
     Route: 065

REACTIONS (1)
  - TRANSIENT ISCHAEMIC ATTACK [None]
